FAERS Safety Report 7786585-6 (Version None)
Quarter: 2011Q3

REPORT INFORMATION
  Report Type: 
  Country: None (occurrence: None)
  Receive Date: 20110927
  Receipt Date: 20110923
  Transmission Date: 20111222
  Serious: Yes (Hospitalization)
  Sender: FDA-Public Use
  Company Number: GER/GER/10/0016685

PATIENT
  Age: 50 Year
  Sex: Male
  Weight: 75 kg

DRUGS (8)
  1. METOPROLOL TARTRATE [Concomitant]
  2. ZOLOFT [Concomitant]
  3. DIURETICS (DIURETICS) [Concomitant]
  4. RAMIPRIL [Suspect]
     Indication: HYPERTENSION
     Dosage: ORAL
     Route: 048
     Dates: start: 20060315
  5. RASILEZ (ALISKIREN) [Suspect]
     Indication: HYPERTENSION
     Dosage: ORAL
     Route: 048
     Dates: start: 20081017
  6. ASPIRIN [Concomitant]
  7. NITRATES [Concomitant]
  8. STATIN (NYSTATIN) [Concomitant]

REACTIONS (2)
  - STRESS [None]
  - HYPERTENSIVE CRISIS [None]
